FAERS Safety Report 13277616 (Version 1)
Quarter: 2017Q1

REPORT INFORMATION
  Report Type: Spontaneous
  Country: CN (occurrence: CN)
  Receive Date: 20170228
  Receipt Date: 20170228
  Transmission Date: 20170428
  Serious: Yes (Other)
  Sender: FDA-Public Use
  Company Number: CN-CMP PHARMA-2017CMP00006

PATIENT

DRUGS (3)
  1. ALCAINE SUPERFICIAL ANESTHESIA [Concomitant]
     Route: 065
  2. TOBRAMYCIN AND DEXAMETHASONE [Concomitant]
     Active Substance: DEXAMETHASONE\TOBRAMYCIN
     Route: 031
  3. TRIAMCINOLONE [Suspect]
     Active Substance: TRIAMCINOLONE
     Indication: AGE-RELATED MACULAR DEGENERATION
     Dosage: 0.1 ML, 1X/MONTH
     Route: 050

REACTIONS (1)
  - Retinal haemorrhage [Unknown]
